FAERS Safety Report 25647202 (Version 1)
Quarter: 2025Q3

REPORT INFORMATION
  Report Type: Spontaneous
  Country: US (occurrence: US)
  Receive Date: 20250806
  Receipt Date: 20250806
  Transmission Date: 20251020
  Serious: No
  Sender: BIONPHARMA INC.
  Company Number: US-Bion-015166

PATIENT

DRUGS (1)
  1. FLUVOXAMINE MALEATE [Suspect]
     Active Substance: FLUVOXAMINE MALEATE
     Indication: Product used for unknown indication
     Route: 048

REACTIONS (5)
  - Temperature intolerance [Unknown]
  - Hypoglycaemia [Unknown]
  - Hypersomnia [Unknown]
  - Dizziness [Unknown]
  - Product substitution issue [Unknown]
